FAERS Safety Report 19357501 (Version 1)
Quarter: 2021Q2

REPORT INFORMATION
  Report Type: Spontaneous
  Country: US (occurrence: US)
  Receive Date: 20210601
  Receipt Date: 20210601
  Transmission Date: 20210717
  Serious: No
  Sender: FDA-Public Use
  Company Number: US-GW PHARMA-202105USGW02560

PATIENT

DRUGS (1)
  1. EPIDIOLEX [Suspect]
     Active Substance: CANNABIDIOL
     Indication: EPILEPSY
     Dosage: 250 MILLIGRAM
     Route: 048
     Dates: start: 20190426

REACTIONS (6)
  - Hormone level abnormal [Unknown]
  - Agitation [Unknown]
  - Aggression [Unknown]
  - Mood altered [Unknown]
  - Weight increased [Unknown]
  - Blepharospasm [Unknown]
